FAERS Safety Report 6991336-9 (Version None)
Quarter: 2010Q3

REPORT INFORMATION
  Report Type: 
  Country: None (occurrence: None)
  Receive Date: 20100916
  Receipt Date: 20090820
  Transmission Date: 20110219
  Serious: No
  Sender: FDA-Public Use
  Company Number: US-WYE-H10673809

PATIENT
  Age: 46 Year
  Sex: Female
  Weight: 136.2 kg

DRUGS (4)
  1. PRISTIQ [Suspect]
     Indication: DEPRESSION
     Route: 048
     Dates: start: 20090501, end: 20090601
  2. PRISTIQ [Suspect]
     Route: 048
     Dates: start: 20090601
  3. KLONOPIN [Concomitant]
  4. FOLIC ACID [Concomitant]

REACTIONS (1)
  - MUSCULOSKELETAL STIFFNESS [None]
